FAERS Safety Report 13534255 (Version 1)
Quarter: 2017Q2

REPORT INFORMATION
  Report Type: Spontaneous
  Country: US (occurrence: US)
  Receive Date: 20170510
  Receipt Date: 20170510
  Transmission Date: 20170830
  Serious: Yes (Hospitalization)
  Sender: FDA-Public Use
  Company Number: None

PATIENT
  Age: 83 Year
  Sex: Female

DRUGS (18)
  1. SENSIPAR [Concomitant]
     Active Substance: CINACALCET HYDROCHLORIDE
  2. ERIVEDGE [Suspect]
     Active Substance: VISMODEGIB
     Indication: BASAL CELL CARCINOMA
     Route: 048
     Dates: start: 20170313
  3. CITALOPRAM [Concomitant]
     Active Substance: CITALOPRAM HYDROBROMIDE
  4. HYDRALAZINE [Concomitant]
     Active Substance: HYDRALAZINE HYDROCHLORIDE
  5. CARBIDOPA/LEVODOPA [Concomitant]
     Active Substance: CARBIDOPA\LEVODOPA
  6. METOPROLOL TARTRATE. [Concomitant]
     Active Substance: METOPROLOL TARTRATE
  7. ZOLPIDEM [Concomitant]
     Active Substance: ZOLPIDEM\ZOLPIDEM TARTRATE
  8. RENVELA [Concomitant]
     Active Substance: SEVELAMER CARBONATE
  9. AMLODIPINE [Concomitant]
     Active Substance: AMLODIPINE BESYLATE
  10. DOXAPIN [Concomitant]
  11. ALLOPURINOL. [Concomitant]
     Active Substance: ALLOPURINOL
  12. ESCITALOPRAM [Concomitant]
     Active Substance: ESCITALOPRAM OXALATE
  13. VITAMIN D [Concomitant]
     Active Substance: CHOLECALCIFEROL
  14. CLONAZEPAM. [Concomitant]
     Active Substance: CLONAZEPAM
  15. VITAMIN D [Concomitant]
     Active Substance: CHOLECALCIFEROL
  16. ALPRAZOLAM. [Concomitant]
     Active Substance: ALPRAZOLAM
  17. LOSARTAN. [Concomitant]
     Active Substance: LOSARTAN
  18. SIMVASTATIN. [Concomitant]
     Active Substance: SIMVASTATIN

REACTIONS (1)
  - Hospitalisation [None]
